FAERS Safety Report 5828846-3 (Version None)
Quarter: 2008Q3

REPORT INFORMATION
  Report Type: 
  Country: None (occurrence: None)
  Receive Date: 20080731
  Receipt Date: 20080721
  Transmission Date: 20090109
  Serious: Yes (Hospitalization, Other)
  Sender: FDA-Public Use
  Company Number: US-JNJFOC-20080403262

PATIENT
  Sex: Female
  Weight: 109.77 kg

DRUGS (12)
  1. REMICADE [Suspect]
     Route: 042
  2. REMICADE [Suspect]
     Route: 042
  3. REMICADE [Suspect]
     Dosage: DOSE INCREASED TO 9 VIALS
     Route: 042
  4. REMICADE [Suspect]
     Route: 042
  5. REMICADE [Suspect]
     Route: 042
  6. REMICADE [Suspect]
     Dosage: DOSE INCREASED TO 7??
     Route: 042
  7. REMICADE [Suspect]
     Dosage: DOSE INCRESED BY 1 VIAL; INTERVAL 1 Q 6 WK
     Route: 042
  8. REMICADE [Suspect]
     Dosage: DOSE INCREASED BY 1 WEEK
     Route: 042
  9. REMICADE [Suspect]
     Route: 042
  10. REMICADE [Suspect]
     Route: 042
  11. REMICADE [Suspect]
     Dosage: 3RD INFUSION, DOSE INCRASED TO 6 MG/KG
     Route: 042
  12. REMICADE [Suspect]
     Indication: PSORIASIS
     Route: 042

REACTIONS (7)
  - CARDIAC FAILURE CONGESTIVE [None]
  - LOSS OF CONSCIOUSNESS [None]
  - LUNG NEOPLASM MALIGNANT [None]
  - RESPIRATORY DISTRESS [None]
  - RESPIRATORY FAILURE [None]
  - SLEEP APNOEA SYNDROME [None]
  - STAPHYLOCOCCAL INFECTION [None]
